FAERS Safety Report 9782525 (Version 1)
Quarter: 2013Q4

REPORT INFORMATION
  Report Type: Spontaneous
  Country: AR (occurrence: None)
  Receive Date: 20131220
  Receipt Date: 20131220
  Transmission Date: 20140711
  Serious: Yes (Hospitalization, Other)
  Sender: FDA-Public Use
  Company Number: 2013P1021993

PATIENT
  Age: 84 Year
  Sex: Female

DRUGS (3)
  1. LITHIUM [Suspect]
     Indication: BIPOLAR DISORDER
  2. AMLODIPINE [Concomitant]
  3. ZETIMIBE [Concomitant]

REACTIONS (2)
  - Cogwheel rigidity [None]
  - Nephrogenic diabetes insipidus [None]
